FAERS Safety Report 10099953 (Version 1)
Quarter: 2014Q2

REPORT INFORMATION
  Report Type: Spontaneous
  Country: GB (occurrence: GB)
  Receive Date: 20140423
  Receipt Date: 20140423
  Transmission Date: 20141212
  Serious: Yes (Other)
  Sender: FDA-Public Use
  Company Number: GB-BANPHARM-20142569

PATIENT
  Sex: Female

DRUGS (3)
  1. IBUPROFEN UNKNOWN PRODUCT [Suspect]
     Indication: PRODUCT USED FOR UNKNOWN INDICATION
  2. APIXABAN [Suspect]
     Indication: KNEE ARTHROPLASTY
  3. METFORMIN [Suspect]
     Indication: DIABETES MELLITUS

REACTIONS (2)
  - Creatinine renal clearance abnormal [Unknown]
  - Drug interaction [Unknown]
